FAERS Safety Report 9539129 (Version 1)
Quarter: 2013Q3

REPORT INFORMATION
  Report Type: Report from Study
  Country: US (occurrence: US)
  Receive Date: 20130920
  Receipt Date: 20130920
  Transmission Date: 20140515
  Serious: Yes (Other)
  Sender: FDA-Public Use
  Company Number: US-PFIZER INC-2013267441

PATIENT
  Sex: 0

DRUGS (1)
  1. NICOTINE [Suspect]

REACTIONS (2)
  - Breast cancer [Unknown]
  - Mastectomy [Unknown]
